FAERS Safety Report 8606522-1 (Version None)
Quarter: 2012Q3

REPORT INFORMATION
  Report Type: 
  Country: None (occurrence: None)
  Receive Date: 20120820
  Receipt Date: 20120816
  Transmission Date: 20120928
  Serious: Yes (Death, Hospitalization, Other)
  Sender: FDA-Public Use
  Company Number: PHHY2012CL055030

PATIENT
  Sex: Female

DRUGS (1)
  1. IMATINIB MESYLATE [Suspect]
     Indication: ACUTE LYMPHOCYTIC LEUKAEMIA
     Dosage: 600 MG, UNK
     Dates: start: 20120217

REACTIONS (8)
  - HEADACHE [None]
  - BONE MARROW DISORDER [None]
  - VOMITING [None]
  - ACUTE LEUKAEMIA [None]
  - PAIN IN EXTREMITY [None]
  - DIZZINESS [None]
  - PAIN [None]
  - NERVOUS SYSTEM DISORDER [None]
